FAERS Safety Report 23105456 (Version 1)
Quarter: 2023Q4

REPORT INFORMATION
  Report Type: Spontaneous
  Country: US (occurrence: None)
  Receive Date: 20231023
  Receipt Date: 20231023
  Transmission Date: 20240110
  Serious: Yes (Hospitalization)
  Sender: FDA-Public Use
  Company Number: None

PATIENT
  Sex: Male

DRUGS (1)
  1. TOBI PODHALER [Suspect]
     Active Substance: TOBRAMYCIN
     Indication: Pneumonia pseudomonal
     Dates: start: 202309

REACTIONS (7)
  - Wheezing [None]
  - Oropharyngeal pain [None]
  - Dysphonia [None]
  - Hyperhidrosis [None]
  - Chest discomfort [None]
  - Productive cough [None]
  - Sputum discoloured [None]
